FAERS Safety Report 7849856-0 (Version None)
Quarter: 2011Q4

REPORT INFORMATION
  Report Type: 
  Country: None (occurrence: None)
  Receive Date: 20111021
  Receipt Date: 20111011
  Transmission Date: 20120403
  Serious: Yes (Other)
  Sender: FDA-Public Use
  Company Number: 1077259

PATIENT
  Age: 55 Year
  Sex: Female

DRUGS (3)
  1. CYCLOSPORINE [Suspect]
     Indication: PUSTULAR PSORIASIS
     Dosage: 5 MG/KG/DAY, 2-5 MG/KG/DAY
  2. METHOTREXATE [Suspect]
     Indication: PUSTULAR PSORIASIS
     Dosage: LESS THAN OR EQUAL TO 45 MG/WEEK
  3. ADALIMUMAB [Suspect]
     Indication: PUSTULAR PSORIASIS

REACTIONS (13)
  - HYPERTENSION [None]
  - CONDITION AGGRAVATED [None]
  - WEIGHT DECREASED [None]
  - PAIN [None]
  - HYPERCHOLESTEROLAEMIA [None]
  - PUSTULAR PSORIASIS [None]
  - HYPERKALAEMIA [None]
  - FATIGUE [None]
  - ABDOMINAL PAIN [None]
  - IMPAIRED WORK ABILITY [None]
  - NAUSEA [None]
  - SMALL INTESTINAL OBSTRUCTION [None]
  - GASTROINTESTINAL NEOPLASM [None]
